FAERS Safety Report 5543687-2 (Version None)
Quarter: 2007Q4

REPORT INFORMATION
  Report Type: 
  Country: None (occurrence: None)
  Receive Date: 20071206
  Receipt Date: 20071121
  Transmission Date: 20080405
  Serious: Yes (Other)
  Sender: FDA-Public Use
  Company Number: 2007-164398-NL

PATIENT
  Age: 38 Year
  Sex: Female
  Weight: 64.6 kg

DRUGS (6)
  1. NUVARING [Suspect]
     Dosage: VAGINAL
     Route: 067
     Dates: start: 20070601, end: 20070914
  2. FORADIL [Concomitant]
  3. PULMICORT [Concomitant]
  4. VENTOLIN [Concomitant]
  5. AZOPT [Concomitant]
  6. SOLAR CAINE [Concomitant]

REACTIONS (6)
  - CEREBROVASCULAR ACCIDENT [None]
  - HEADACHE [None]
  - HYPOAESTHESIA [None]
  - MOVEMENT DISORDER [None]
  - PAIN [None]
  - VISION BLURRED [None]
